FAERS Safety Report 14319818 (Version 1)
Quarter: 2017Q4

REPORT INFORMATION
  Report Type: Spontaneous
  Country: US (occurrence: US)
  Receive Date: 20171221
  Receipt Date: 20171221
  Transmission Date: 20180321
  Serious: Yes (Hospitalization)
  Sender: FDA-Public Use
  Company Number: None

PATIENT
  Sex: Female

DRUGS (1)
  1. STIVARGA [Suspect]
     Active Substance: REGORAFENIB
     Indication: SOFT TISSUE SARCOMA
     Route: 048
     Dates: start: 20170913

REACTIONS (5)
  - Alopecia [None]
  - Dehydration [None]
  - Weight decreased [None]
  - Depression [None]
  - Therapy change [None]
